FAERS Safety Report 8493478-8 (Version None)
Quarter: 2012Q3

REPORT INFORMATION
  Report Type: 
  Country: None (occurrence: None)
  Receive Date: 20120706
  Receipt Date: 20120627
  Transmission Date: 20120928
  Serious: Yes (Hospitalization)
  Sender: FDA-Public Use
  Company Number: DE-ROCHE-1082174

PATIENT
  Age: 71 Year
  Sex: Male

DRUGS (6)
  1. PREDNISONE [Suspect]
     Indication: NON-HODGKIN'S LYMPHOMA
     Dosage: UNKNOWN, LAST DOSE PRIOR TO SAE: 12/JUN/2012
     Route: 065
  2. MABTHERA [Suspect]
     Indication: NON-HODGKIN'S LYMPHOMA
     Dosage: UNKNOWN, LAST DOSE PRIOR TO SAE: 11/JUN/2012
     Route: 042
  3. DOXORUBICIN HCL [Suspect]
     Indication: NON-HODGKIN'S LYMPHOMA
     Dosage: UNKNOWN, LAST DOSE PRIOR TO SAE: 12/JUN/2012
     Route: 065
  4. VINCRISTINE [Suspect]
     Indication: NON-HODGKIN'S LYMPHOMA
     Dosage: UNKNOWN, LAST DOSE PRIOR TO SAE: 12/JUN/2012
     Route: 065
  5. FILGRASTIM [Suspect]
     Indication: NON-HODGKIN'S LYMPHOMA
     Dosage: UNKNOWN, LAST DOSE PRIOR TO SAE: 12/JUN/2012
     Route: 065
  6. CYCLOPHOSPHAMIDE [Suspect]
     Indication: NON-HODGKIN'S LYMPHOMA
     Dosage: UNKNOWN, LAST DOSE PRIOR TO SAE: 12/JUN/2012
     Route: 065

REACTIONS (1)
  - CEREBROVASCULAR ACCIDENT [None]
